FAERS Safety Report 14612811 (Version 3)
Quarter: 2020Q2

REPORT INFORMATION
  Report Type: Report from Study
  Country: CA (occurrence: CA)
  Receive Date: 20180308
  Receipt Date: 20200604
  Transmission Date: 20200713
  Serious: Yes (Hospitalization)
  Sender: FDA-Public Use
  Company Number: CA-JNJFOC-20180306723

PATIENT
  Age: 9 Year
  Sex: Male
  Weight: 60.5 kg

DRUGS (2)
  1. REMICADE [Suspect]
     Active Substance: INFLIXIMAB
     Route: 042
     Dates: start: 20180131
  2. REMICADE [Suspect]
     Active Substance: INFLIXIMAB
     Indication: CROHN^S DISEASE
     Dosage: 5 MG/KG?ON 22-MAY-2020, THE PATIENT RECEIVED 73TH INFLIXIMAB 350 MG
     Route: 042
     Dates: start: 201202

REACTIONS (3)
  - Off label use [Unknown]
  - Product use issue [Unknown]
  - Gastroenteritis viral [Unknown]

NARRATIVE: CASE EVENT DATE: 201202
